FAERS Safety Report 6956992-X (Version None)
Quarter: 2010Q3

REPORT INFORMATION
  Report Type: 
  Country: None (occurrence: None)
  Receive Date: 20100827
  Receipt Date: 20100827
  Transmission Date: 20110219
  Serious: Yes (Death)
  Sender: FDA-Public Use
  Company Number: None

PATIENT
  Age: 77 Year
  Sex: Male
  Weight: 72.5755 kg

DRUGS (1)
  1. ARICEPT [Suspect]
     Indication: AMNESIA

REACTIONS (5)
  - COMPLETED SUICIDE [None]
  - DECREASED APPETITE [None]
  - GUN SHOT WOUND [None]
  - HYPOPHAGIA [None]
  - INSOMNIA [None]
